FAERS Safety Report 4810530-6 (Version None)
Quarter: 2005Q4

REPORT INFORMATION
  Report Type: 
  Country: None (occurrence: None)
  Receive Date: 20051025
  Receipt Date: 20051025
  Transmission Date: 20060501
  Serious: Yes (Other)
  Sender: FDA-Public Use
  Company Number: None

PATIENT
  Age: 58 Year
  Sex: Male
  Weight: 89.1 kg

DRUGS (10)
  1. ISOSORBIDE MONONITRATE [Suspect]
  2. ISOSORBIDE MONONITRATE [Concomitant]
  3. OMEPRAZOLE [Concomitant]
  4. NITROGLYCERIN [Concomitant]
  5. LITHIUM CARBONATE [Concomitant]
  6. QUETIAPINE FUMARATE [Concomitant]
  7. ALBUTEROL [Concomitant]
  8. GEMFIBROZIL [Concomitant]
  9. LORATADINE [Concomitant]
  10. MELOXICAM [Concomitant]

REACTIONS (1)
  - CONFUSIONAL STATE [None]
